FAERS Safety Report 7368870-5 (Version None)
Quarter: 2011Q1

REPORT INFORMATION
  Report Type: 
  Country: None (occurrence: None)
  Receive Date: 20110323
  Receipt Date: 20100916
  Transmission Date: 20110831
  Serious: Yes (Hospitalization, Other)
  Sender: FDA-Public Use
  Company Number: US-BAYER-201021245NA

PATIENT
  Sex: Female
  Weight: 102.49 kg

DRUGS (1)
  1. YASMIN [Suspect]
     Indication: POLYCYSTIC OVARIES
     Route: 048
     Dates: start: 20061001, end: 20061123

REACTIONS (14)
  - MUSCLE SPASMS [None]
  - INTRACRANIAL ANEURYSM [None]
  - PULMONARY EMBOLISM [None]
  - HAEMORRHAGIC INFARCTION [None]
  - INTRACRANIAL VENOUS SINUS THROMBOSIS [None]
  - AMNESIA [None]
  - FATIGUE [None]
  - RESPIRATORY FAILURE [None]
  - SPIDER VEIN [None]
  - CONVULSION [None]
  - SUPERIOR SAGITTAL SINUS THROMBOSIS [None]
  - PAIN [None]
  - SUBARACHNOID HAEMORRHAGE [None]
  - DEEP VEIN THROMBOSIS [None]
